FAERS Safety Report 15602563 (Version 1)
Quarter: 2018Q4

REPORT INFORMATION
  Report Type: Spontaneous
  Country: US (occurrence: US)
  Receive Date: 20181109
  Receipt Date: 20181109
  Transmission Date: 20190205
  Serious: No
  Sender: FDA-Public Use
  Company Number: US-SA-2018SA306200

PATIENT
  Sex: Female

DRUGS (13)
  1. CIPRO [CIPROFLOXACIN LACTATE] [Concomitant]
     Dosage: 250 MG
  2. AMOXICILLIN BILLIX [Concomitant]
     Dosage: 875 MG
  3. ELIQUIS [Concomitant]
     Active Substance: APIXABAN
  4. CIPROFLOXACIN. [Concomitant]
     Active Substance: CIPROFLOXACIN
     Dosage: 500 MG
  5. HYDROCODONE [Concomitant]
     Active Substance: HYDROCODONE
  6. AMOXICILLIN CLAVULANIC ACID [Suspect]
     Active Substance: AMOXICILLIN\CLAVULANIC ACID
     Dosage: 875 MG
  7. AZITHROMYCIN 1A PHARMA [AZITHROMYCIN] [Concomitant]
     Dosage: 250 MG
  8. CITALOPRAM [Concomitant]
     Active Substance: CITALOPRAM HYDROBROMIDE
     Dosage: 20 MG
  9. AUBAGIO [Suspect]
     Active Substance: TERIFLUNOMIDE
     Dosage: 14 MG, QD
     Route: 048
     Dates: start: 20181029
  10. MACROBID [CLARITHROMYCIN] [Concomitant]
     Dosage: 100 MG
  11. FLAGYL [Concomitant]
     Active Substance: METRONIDAZOLE\METRONIDAZOLE HYDROCHLORIDE
     Dosage: 375 MG
  12. AMANTADINE. [Concomitant]
     Active Substance: AMANTADINE HYDROCHLORIDE
     Dosage: 100 MG
  13. CLONAZZ [Concomitant]

REACTIONS (1)
  - Alopecia [Unknown]
